FAERS Safety Report 8321470-2 (Version None)
Quarter: 2012Q2

REPORT INFORMATION
  Report Type: 
  Country: None (occurrence: None)
  Receive Date: 20120430
  Receipt Date: 20120430
  Transmission Date: 20120825
  Serious: Yes (Other)
  Sender: FDA-Public Use
  Company Number: None

PATIENT
  Age: 47 Year
  Sex: Female
  Weight: 61.234 kg

DRUGS (2)
  1. AZITHROMYCIN [Concomitant]
  2. AZITHROMYCIN [Suspect]
     Indication: SINUSITIS
     Dosage: 500MG
     Route: 048
     Dates: start: 20120411, end: 20120412

REACTIONS (2)
  - ARTHROPATHY [None]
  - ARTHRALGIA [None]
